FAERS Safety Report 5563564-0 (Version None)
Quarter: 2007Q4

REPORT INFORMATION
  Report Type: 
  Country: None (occurrence: None)
  Receive Date: 20071217
  Receipt Date: 20070628
  Transmission Date: 20080405
  Serious: No
  Sender: FDA-Public Use
  Company Number: US-ASTRAZENECA-2007UW15346

PATIENT
  Age: 59 Year
  Sex: Female
  Weight: 84.4 kg

DRUGS (4)
  1. CRESTOR [Suspect]
     Indication: BLOOD CHOLESTEROL INCREASED
     Route: 048
     Dates: start: 20070501
  2. HUMALOG [Concomitant]
  3. LEVAMIER [Concomitant]
  4. PREVACID [Concomitant]

REACTIONS (1)
  - ALOPECIA [None]
